FAERS Safety Report 5277076-5 (Version None)
Quarter: 2007Q1

REPORT INFORMATION
  Report Type: 
  Country: None (occurrence: None)
  Receive Date: 20070327
  Receipt Date: 20070323
  Transmission Date: 20070707
  Serious: Yes (Other)
  Sender: FDA-Public Use
  Company Number: BR-GLAXOSMITHKLINE-A0631523A

PATIENT
  Age: 71 Year
  Sex: Male

DRUGS (6)
  1. AVANDIA [Suspect]
     Dosage: 4MG PER DAY
     Route: 048
  2. INSULIN [Concomitant]
     Route: 065
     Dates: start: 20030101
  3. BLOPRESS [Concomitant]
     Route: 065
     Dates: start: 20030101
  4. SIMVASTATIN [Concomitant]
     Route: 065
  5. ASPIRIN [Concomitant]
  6. GINSENG [Concomitant]

REACTIONS (5)
  - ABDOMINAL PAIN [None]
  - GALLBLADDER POLYP [None]
  - HEPATIC CIRRHOSIS [None]
  - HEPATIC NEOPLASM MALIGNANT [None]
  - NODULE [None]
